FAERS Safety Report 5289359-3 (Version None)
Quarter: 2007Q2

REPORT INFORMATION
  Report Type: 
  Country: None (occurrence: None)
  Receive Date: 20070406
  Receipt Date: 20070326
  Transmission Date: 20071010
  Serious: Yes (Other)
  Sender: FDA-Public Use
  Company Number: PHEH2007US03580

PATIENT
  Sex: Male

DRUGS (7)
  1. ZOMETA [Suspect]
  2. TAXOTERE [Concomitant]
  3. LUPRON [Concomitant]
     Dates: start: 20060829
  4. TAXOL [Concomitant]
     Dosage: 60 MG, UNK
     Dates: start: 20061016, end: 20061205
  5. DECADRON [Concomitant]
     Dosage: 8 MG, UNK
  6. DECADRON [Concomitant]
     Dosage: 4 MG, BID
     Dates: start: 20060228
  7. ADRIAMYCIN PFS [Concomitant]
     Dates: start: 20060308

REACTIONS (1)
  - OSTEONECROSIS [None]
